FAERS Safety Report 13389010 (Version 1)
Quarter: 2017Q1

REPORT INFORMATION
  Report Type: Spontaneous
  Country: US (occurrence: US)
  Receive Date: 20170331
  Receipt Date: 20170331
  Transmission Date: 20170429
  Serious: No
  Sender: FDA-Public Use
  Company Number: PHEH2017US009388

PATIENT
  Sex: Male
  Weight: 90.71 kg

DRUGS (1)
  1. GLEEVEC [Suspect]
     Active Substance: IMATINIB MESYLATE
     Indication: CHRONIC MYELOID LEUKAEMIA
     Dosage: 400 MG, QD
     Route: 048
     Dates: start: 20161129, end: 20170328

REACTIONS (4)
  - Weight increased [Unknown]
  - Fluid retention [Unknown]
  - Nausea [Unknown]
  - Oedema [Unknown]
